FAERS Safety Report 8136725-4 (Version None)
Quarter: 2012Q1

REPORT INFORMATION
  Report Type: 
  Country: None (occurrence: None)
  Receive Date: 20120214
  Receipt Date: 20120206
  Transmission Date: 20120608
  Serious: Yes (Hospitalization)
  Sender: FDA-Public Use
  Company Number: IE-MEDIMMUNE-MEDI-0014846

PATIENT
  Sex: Male

DRUGS (3)
  1. KAPSOVIT [Concomitant]
  2. SYNAGIS [Suspect]
     Route: 030
     Dates: start: 20110922, end: 20110922
  3. FERROUS SULFATE TAB [Concomitant]

REACTIONS (2)
  - MALAISE [None]
  - PYREXIA [None]
